FAERS Safety Report 8062557-1 (Version None)
Quarter: 2012Q1

REPORT INFORMATION
  Report Type: 
  Country: None (occurrence: None)
  Receive Date: 20120117
  Receipt Date: 20120111
  Transmission Date: 20120608
  Serious: Yes (Other)
  Sender: FDA-Public Use
  Company Number: CL-372-2012

PATIENT
  Age: 24 Year
  Sex: Female

DRUGS (1)
  1. FLUCONAZOLE [Suspect]
     Indication: VULVOVAGINAL CANDIDIASIS
     Dosage: ORAL
     Route: 048

REACTIONS (8)
  - DRUG ERUPTION [None]
  - SKIN HYPERPIGMENTATION [None]
  - SKIN LESION [None]
  - BURNING SENSATION [None]
  - PRURITUS [None]
  - HEADACHE [None]
  - RASH MACULO-PAPULAR [None]
  - BLISTER [None]
